FAERS Safety Report 18948067 (Version 1)
Quarter: 2021Q1

REPORT INFORMATION
  Report Type: Spontaneous
  Country: US (occurrence: US)
  Receive Date: 20210226
  Receipt Date: 20210226
  Transmission Date: 20210420
  Serious: No
  Sender: FDA-Public Use
  Company Number: US-PFIZER INC-2019332718

PATIENT
  Age: 67 Year
  Sex: Female

DRUGS (2)
  1. IBRANCE [Suspect]
     Active Substance: PALBOCICLIB
     Dosage: 2.5 MG
  2. IBRANCE [Suspect]
     Active Substance: PALBOCICLIB
     Indication: HORMONE RECEPTOR POSITIVE BREAST CANCER
     Dosage: 125 MG, DAILY
     Route: 048

REACTIONS (2)
  - Product prescribing error [Unknown]
  - White blood cell count abnormal [Not Recovered/Not Resolved]
